FAERS Safety Report 11928457 (Version 3)
Quarter: 2016Q1

REPORT INFORMATION
  Report Type: Report from Study
  Country: MX (occurrence: MX)
  Receive Date: 20160119
  Receipt Date: 20160204
  Transmission Date: 20160526
  Serious: Yes (Hospitalization)
  Sender: FDA-Public Use
  Company Number: MX-SA-2016SA009064

PATIENT
  Age: 47 Year
  Sex: Male

DRUGS (9)
  1. ROSUVASTATIN [Concomitant]
     Active Substance: ROSUVASTATIN
  2. BEZAFIBRATE [Concomitant]
     Active Substance: BEZAFIBRATE
  3. QUETIAPINE [Concomitant]
     Active Substance: QUETIAPINE
  4. LEMTRADA [Suspect]
     Active Substance: ALEMTUZUMAB
     Indication: MULTIPLE SCLEROSIS
     Route: 041
     Dates: start: 20160114, end: 20160114
  5. ALPRAZOLAM. [Concomitant]
     Active Substance: ALPRAZOLAM
  6. MIRTAZAPINE. [Concomitant]
     Active Substance: MIRTAZAPINE
  7. LEVOTHYROXINE. [Concomitant]
     Active Substance: LEVOTHYROXINE
  8. INSULIN [Concomitant]
     Active Substance: INSULIN NOS
  9. METHYLPREDNISOLONE. [Suspect]
     Active Substance: METHYLPREDNISOLONE
     Indication: PREMEDICATION
     Route: 065

REACTIONS (6)
  - Chest pain [Recovered/Resolved]
  - Feeling abnormal [Recovered/Resolved]
  - Myocardial infarction [Recovered/Resolved]
  - Dyspnoea [Recovered/Resolved]
  - Anxiety [Recovered/Resolved]
  - Electrocardiogram ST segment elevation [Recovered/Resolved]

NARRATIVE: CASE EVENT DATE: 20160114
